FAERS Safety Report 5023395-7 (Version None)
Quarter: 2006Q2

REPORT INFORMATION
  Report Type: 
  Country: None (occurrence: None)
  Receive Date: 20060612
  Receipt Date: 20060530
  Transmission Date: 20061013
  Serious: Yes (Hospitalization)
  Sender: FDA-Public Use
  Company Number: PHEH2006US07026

PATIENT
  Age: 65 Year
  Sex: Female

DRUGS (1)
  1. VIVELLE-DOT [Suspect]
     Indication: HOT FLUSH
     Dosage: 0.0375 MG/DAY, TWICE WEEKLY
     Route: 062
     Dates: start: 20060501

REACTIONS (3)
  - ALOPECIA [None]
  - HAIR COLOUR CHANGES [None]
  - HERNIA REPAIR [None]
